FAERS Safety Report 16815161 (Version 1)
Quarter: 2019Q4

REPORT INFORMATION
  Report Type: Spontaneous
  Country: US (occurrence: US)
  Receive Date: 20190916
  Receipt Date: 20190916
  Transmission Date: 20200122
  Serious: Yes (Hospitalization, Other)
  Sender: FDA-Public Use
  Company Number: None

PATIENT
  Age: 43 Year
  Sex: Female
  Weight: 91.8 kg

DRUGS (6)
  1. ARISTADA [Suspect]
     Active Substance: ARIPIPRAZOLE LAUROXIL
     Indication: BIPOLAR DISORDER
  2. ADVIL [Concomitant]
     Active Substance: IBUPROFEN
  3. TYLENOL [Concomitant]
     Active Substance: ACETAMINOPHEN
  4. LITHIUM. [Concomitant]
     Active Substance: LITHIUM
  5. DECONGESTANT [Concomitant]
     Active Substance: UNSPECIFIED INGREDIENT
  6. ANTIHISTAMINE [Concomitant]
     Active Substance: ANTIHISTAMINES NOS

REACTIONS (5)
  - Treatment failure [None]
  - Micturition urgency [None]
  - Condition aggravated [None]
  - Hyperglycaemia [None]
  - Weight increased [None]

NARRATIVE: CASE EVENT DATE: 20190601
